FAERS Safety Report 20634679 (Version 1)
Quarter: 2022Q1

REPORT INFORMATION
  Report Type: Spontaneous
  Country: US (occurrence: US)
  Receive Date: 20220325
  Receipt Date: 20220325
  Transmission Date: 20220423
  Serious: No
  Sender: FDA-Public Use
  Company Number: US-009507513-2203USA007549

PATIENT
  Sex: Female

DRUGS (2)
  1. KEYTRUDA [Suspect]
     Active Substance: PEMBROLIZUMAB
     Indication: Uterine cancer
  2. LENVATINIB MESYLATE [Suspect]
     Active Substance: LENVATINIB MESYLATE
     Indication: Uterine cancer
     Dosage: 20MG DAILY
     Dates: start: 20220301

REACTIONS (13)
  - Diarrhoea [Recovering/Resolving]
  - Vaginal haemorrhage [Recovering/Resolving]
  - Vulvovaginal pain [Unknown]
  - Proctalgia [Unknown]
  - Fatigue [Recovering/Resolving]
  - Sleep disorder [Recovering/Resolving]
  - Asthenia [Recovering/Resolving]
  - Dysphonia [Unknown]
  - Decreased appetite [Recovering/Resolving]
  - Headache [Unknown]
  - Weight decreased [Unknown]
  - Gait disturbance [Unknown]
  - Blood pressure abnormal [Recovering/Resolving]

NARRATIVE: CASE EVENT DATE: 20220301
